FAERS Safety Report 7875056-4 (Version None)
Quarter: 2011Q4

REPORT INFORMATION
  Report Type: 
  Country: None (occurrence: None)
  Receive Date: 20111031
  Receipt Date: 20111024
  Transmission Date: 20120403
  Serious: Yes (Hospitalization)
  Sender: FDA-Public Use
  Company Number: IT-BRISTOL-MYERS SQUIBB COMPANY-16155442

PATIENT
  Age: 56 Year
  Sex: Male

DRUGS (1)
  1. SPRYCEL [Suspect]
     Indication: CHRONIC MYELOID LEUKAEMIA
     Dosage: 1DF=1 UNIT INTERRUPTED ON 20SEP2011
     Route: 048
     Dates: start: 20110103

REACTIONS (3)
  - CEREBRAL ISCHAEMIA [None]
  - HYPERTENSION [None]
  - PYRAMIDAL TRACT SYNDROME [None]
